FAERS Safety Report 6132443-2 (Version None)
Quarter: 2009Q1

REPORT INFORMATION
  Report Type: 
  Country: None (occurrence: None)
  Receive Date: 20090325
  Receipt Date: 20090226
  Transmission Date: 20090719
  Serious: No
  Sender: FDA-Public Use
  Company Number: US-B.I. PHARMACEUTICALS,INC./RIDGEFIELD-2009-BP-02763BP

PATIENT
  Age: 47 Year

DRUGS (3)
  1. APTIVUS/RITONAVIR CAPSULES [Suspect]
  2. TRUVADA [Suspect]
  3. NORVIR [Suspect]

REACTIONS (3)
  - ABDOMINAL DISTENSION [None]
  - ASTHENIA [None]
  - FATIGUE [None]
